FAERS Safety Report 14454703 (Version 1)
Quarter: 2018Q1

REPORT INFORMATION
  Report Type: Spontaneous
  Country: US (occurrence: US)
  Receive Date: 20180129
  Receipt Date: 20180129
  Transmission Date: 20180509
  Serious: No
  Sender: FDA-Public Use
  Company Number: US-ALLERGAN-1760531US

PATIENT
  Sex: Female

DRUGS (1)
  1. ACTIGALL [Suspect]
     Active Substance: URSODIOL
     Indication: PRODUCT USED FOR UNKNOWN INDICATION
     Dosage: 300 MG, UNK
     Route: 048
     Dates: start: 201710

REACTIONS (2)
  - Product size issue [Unknown]
  - Dysphagia [Unknown]
